FAERS Safety Report 5401970-5 (Version None)
Quarter: 2007Q3

REPORT INFORMATION
  Report Type: 
  Country: None (occurrence: None)
  Receive Date: 20070727
  Receipt Date: 20070717
  Transmission Date: 20080115
  Serious: Yes (Hospitalization)
  Sender: FDA-Public Use
  Company Number: GXKR2007GB06195

PATIENT
  Age: 73 Year
  Sex: Male
  Weight: 97 kg

DRUGS (6)
  1. ASPIRIN [Suspect]
     Indication: CARDIOVASCULAR EVENT PROPHYLAXIS
     Dosage: 75 MG, QD, ORAL
     Route: 048
     Dates: start: 20070419, end: 20070613
  2. CRESTOR [Suspect]
     Indication: BLOOD CHOLESTEROL INCREASED
     Dosage: 5 MG, QD, ORAL
     Route: 048
     Dates: start: 20070419, end: 20070604
  3. AMOXICILLIN [Concomitant]
  4. ATENOLOL [Concomitant]
  5. BENDROFLUMETHIAZIDE (BENDROFLUMETHIAZIDE) [Concomitant]
  6. LINCTUS CODEINE (CODEINE PHOSPHATE) [Concomitant]

REACTIONS (1)
  - RENAL FAILURE ACUTE [None]
